FAERS Safety Report 7981111-0 (Version None)
Quarter: 2011Q4

REPORT INFORMATION
  Report Type: 
  Country: None (occurrence: None)
  Receive Date: 20111212
  Receipt Date: 20111202
  Transmission Date: 20120403
  Serious: Yes (Other)
  Sender: FDA-Public Use
  Company Number: DSA_48203_2011

PATIENT
  Sex: Female

DRUGS (15)
  1. WELLBUTRIN [Suspect]
     Indication: DEPRESSION
     Dosage: (DF)
  2. WELLBUTRIN [Suspect]
     Indication: ANXIETY
     Dosage: (DF)
  3. ALDARA [Suspect]
     Indication: PRECANCEROUS CELLS PRESENT
     Dosage: (DF)
  4. AMBIEN [Concomitant]
  5. PROZAC [Concomitant]
  6. NARDIL [Concomitant]
  7. PAXIL [Suspect]
     Indication: ANXIETY
     Dosage: (DF)
  8. PAXIL [Suspect]
     Indication: DEPRESSION
     Dosage: (DF)
  9. CYMBALTA [Suspect]
     Indication: ANXIETY
     Dosage: (DF)
  10. CYMBALTA [Suspect]
     Indication: DEPRESSION
     Dosage: (DF)
  11. ZOLOFT [Concomitant]
  12. PAMELOR [Concomitant]
  13. ABILIFY [Concomitant]
  14. REMERON [Concomitant]
  15. PRISTIQ [Concomitant]

REACTIONS (2)
  - THROMBOSIS [None]
  - DRUG INEFFECTIVE [None]
